FAERS Safety Report 4868761-5 (Version None)
Quarter: 2005Q4

REPORT INFORMATION
  Report Type: 
  Country: None (occurrence: None)
  Receive Date: 20051223
  Receipt Date: 20051207
  Transmission Date: 20060501
  Serious: Yes (Hospitalization)
  Sender: FDA-Public Use
  Company Number: 2005EU002726

PATIENT
  Age: 12 Year
  Sex: Male

DRUGS (2)
  1. PROGRAF [Suspect]
     Indication: BONE MARROW TRANSPLANT
     Dosage: SEE IMAGE
     Route: 042
     Dates: start: 20050802, end: 20051021
  2. PROGRAF [Suspect]
     Indication: BONE MARROW TRANSPLANT
     Dosage: SEE IMAGE
     Route: 042
     Dates: start: 20051029, end: 20051115

REACTIONS (14)
  - ANXIETY [None]
  - APHASIA [None]
  - APRAXIA [None]
  - ASTHENIA [None]
  - ASTHMA [None]
  - CENTRAL PONTINE MYELINOLYSIS [None]
  - CSF PROTEIN INCREASED [None]
  - HYPONATRAEMIA [None]
  - NERVOUSNESS [None]
  - PHOTOPHOBIA [None]
  - SOMNOLENCE [None]
  - SPEECH DISORDER [None]
  - TREMOR [None]
  - VOMITING [None]
